FAERS Safety Report 7523321-2 (Version None)
Quarter: 2011Q2

REPORT INFORMATION
  Report Type: 
  Country: None (occurrence: None)
  Receive Date: 20110603
  Receipt Date: 20110211
  Transmission Date: 20111010
  Serious: Yes (Other)
  Sender: FDA-Public Use
  Company Number: A0913816A

PATIENT
  Age: 41 Year
  Sex: Female

DRUGS (2)
  1. TYKERB [Suspect]
     Indication: BREAST CANCER
     Dosage: 1250MG PER DAY
     Route: 048
     Dates: start: 20080301
  2. XELODA [Suspect]
     Dosage: 2000MGM2 SEE DOSAGE TEXT
     Route: 048
     Dates: start: 20080301

REACTIONS (4)
  - POLYNEUROPATHY [None]
  - PALMAR-PLANTAR ERYTHRODYSAESTHESIA SYNDROME [None]
  - DIARRHOEA [None]
  - VOMITING [None]
